FAERS Safety Report 5154323-1 (Version None)
Quarter: 2006Q4

REPORT INFORMATION
  Report Type: 
  Country: None (occurrence: None)
  Receive Date: 20061114
  Receipt Date: 20061103
  Transmission Date: 20070319
  Serious: Yes (Other)
  Sender: FDA-Public Use
  Company Number: DE-2006-031459

PATIENT
  Age: 37 Year
  Sex: Female
  Weight: 70 kg

DRUGS (1)
  1. MIRENA [Suspect]
     Dosage: 20 UG/DAY; CONT; INTRA-UTERINE
     Route: 015
     Dates: start: 20050131, end: 20061016

REACTIONS (2)
  - CERVIX CARCINOMA STAGE 0 [None]
  - PELVIC FLUID COLLECTION [None]
